FAERS Safety Report 7124922-6 (Version None)
Quarter: 2010Q4

REPORT INFORMATION
  Report Type: 
  Country: None (occurrence: None)
  Receive Date: 20101123
  Receipt Date: 20101123
  Transmission Date: 20110411
  Serious: Yes (Hospitalization)
  Sender: FDA-Public Use
  Company Number: None

PATIENT
  Sex: Male
  Weight: 31.3 kg

DRUGS (9)
  1. PEG-L-ASPARAGINASE (PEGASPARAGASE, ONCOSPAR) [Suspect]
     Dosage: 2700 IU
  2. CYTARABINE [Suspect]
     Dosage: 70 MG
  3. DEXAMETHASONE [Suspect]
     Dosage: 143 MG
  4. METHOTREXATE [Suspect]
     Dosage: 15 MG
  5. VINCRISTINE SULFATE [Suspect]
     Dosage: 6.4 MG
  6. BACTRIM [Concomitant]
  7. FLUCONAZOLE [Concomitant]
  8. ZANTAC [Concomitant]
  9. ZOFRAN [Concomitant]

REACTIONS (20)
  - AGITATION [None]
  - BLOOD GLUCOSE INCREASED [None]
  - BLOOD PH DECREASED [None]
  - BRADYCARDIA [None]
  - CARDIAC ARREST [None]
  - DIABETIC KETOACIDOSIS [None]
  - DIARRHOEA [None]
  - DISORIENTATION [None]
  - HYPOTENSION [None]
  - MENTAL STATUS CHANGES [None]
  - OXYGEN SATURATION DECREASED [None]
  - PANCREATITIS [None]
  - PLEURAL EFFUSION [None]
  - PULMONARY OEDEMA [None]
  - RESPIRATORY DISTRESS [None]
  - RHONCHI [None]
  - TACHYCARDIA [None]
  - TACHYPNOEA [None]
  - TYPE 1 DIABETES MELLITUS [None]
  - VOMITING [None]
